FAERS Safety Report 19031692 (Version 1)
Quarter: 2021Q1

REPORT INFORMATION
  Report Type: Spontaneous
  Country: US (occurrence: US)
  Receive Date: 20210319
  Receipt Date: 20210319
  Transmission Date: 20210420
  Serious: Yes (Other)
  Sender: FDA-Public Use
  Company Number: None

PATIENT
  Age: 47 Year
  Sex: Male
  Weight: 87 kg

DRUGS (2)
  1. SILDENAFIL 100MG [Suspect]
     Active Substance: SILDENAFIL
  2. TRAZODONE [Suspect]
     Active Substance: TRAZODONE HYDROCHLORIDE
     Indication: POST-TRAUMATIC STRESS DISORDER
     Dates: start: 20201117

REACTIONS (4)
  - Vision blurred [None]
  - Paraphilia [None]
  - Recalled product [None]
  - Product commingling [None]

NARRATIVE: CASE EVENT DATE: 20210315
